FAERS Safety Report 9785217 (Version 1)
Quarter: 2013Q4

REPORT INFORMATION
  Report Type: Spontaneous
  Country: US (occurrence: None)
  Receive Date: 20131226
  Receipt Date: 20131226
  Transmission Date: 20140711
  Serious: No
  Sender: FDA-Public Use
  Company Number: None

PATIENT
  Age: 26 Year
  Sex: Male

DRUGS (1)
  1. FIBRIN SEALANT [Suspect]
     Dates: start: 20131224, end: 20131224

REACTIONS (1)
  - Wrong technique in drug usage process [None]
